FAERS Safety Report 26017705 (Version 1)
Quarter: 2025Q4

REPORT INFORMATION
  Report Type: Spontaneous
  Country: US (occurrence: US)
  Receive Date: 20251110
  Receipt Date: 20251110
  Transmission Date: 20260117
  Serious: No
  Sender: ABBVIE
  Company Number: US-ABBVIE-6536357

PATIENT
  Age: 48 Year
  Sex: Female
  Weight: 63.502 kg

DRUGS (4)
  1. HUMIRA [Suspect]
     Active Substance: ADALIMUMAB
     Indication: Psoriasis
     Dosage: UNKNOWN
     Route: 058
     Dates: end: 2023
  2. BUPROPION [Concomitant]
     Active Substance: BUPROPION
     Indication: Depression
  3. DULOXETINE [Concomitant]
     Active Substance: DULOXETINE
     Indication: Depression
  4. VRAYLAR [Concomitant]
     Active Substance: CARIPRAZINE
     Indication: Depression

REACTIONS (3)
  - Injection site pain [Recovered/Resolved]
  - Onychomadesis [Recovered/Resolved]
  - Psoriasis [Recovered/Resolved]

NARRATIVE: CASE EVENT DATE: 20240101
